FAERS Safety Report 10403545 (Version 1)
Quarter: 2014Q3

REPORT INFORMATION
  Report Type: Spontaneous
  Country: IT (occurrence: IT)
  Receive Date: 20140822
  Receipt Date: 20140822
  Transmission Date: 20150326
  Serious: Yes (Other)
  Sender: FDA-Public Use
  Company Number: IT-SA-2014SA111876

PATIENT
  Age: 83 Year
  Sex: Male

DRUGS (4)
  1. CONGESCOR [Suspect]
     Active Substance: BISOPROLOL
     Indication: PRODUCT USED FOR UNKNOWN INDICATION
     Route: 048
  2. LASIX [Suspect]
     Active Substance: FUROSEMIDE
     Indication: ARRHYTHMIA
     Route: 048
  3. TRIATEC [Suspect]
     Active Substance: RAMIPRIL
     Indication: PRODUCT USED FOR UNKNOWN INDICATION
     Route: 048
  4. CORDARONE [Suspect]
     Active Substance: AMIODARONE HYDROCHLORIDE
     Indication: ARRHYTHMIA
     Route: 048

REACTIONS (7)
  - Arrhythmia [Unknown]
  - Syncope [Unknown]
  - Heart rate irregular [Unknown]
  - Fatigue [Unknown]
  - Extrasystoles [Unknown]
  - Hypotension [Unknown]
  - Asthenia [Unknown]

NARRATIVE: CASE EVENT DATE: 2014
